FAERS Safety Report 14603965 (Version 1)
Quarter: 2018Q1

REPORT INFORMATION
  Report Type: Report from Study
  Country: FR (occurrence: FR)
  Receive Date: 20180306
  Receipt Date: 20180306
  Transmission Date: 20180509
  Serious: Yes (Other)
  Sender: FDA-Public Use
  Company Number: FR-CONCORDIA PHARMACEUTICALS INC.-E2B_00010452

PATIENT
  Age: 41 Year
  Sex: Female

DRUGS (3)
  1. ASPIRINE [Suspect]
     Active Substance: ASPIRIN
  2. HYDROXYCHLOROQUINE [Suspect]
     Active Substance: HYDROXYCHLOROQUINE
  3. PREDNISONE. [Suspect]
     Active Substance: PREDNISONE

REACTIONS (2)
  - Exposure during pregnancy [Unknown]
  - Abortion spontaneous [Unknown]
